FAERS Safety Report 12004808 (Version 9)
Quarter: 2017Q2

REPORT INFORMATION
  Report Type: Spontaneous
  Country: US (occurrence: US)
  Receive Date: 20160204
  Receipt Date: 20170628
  Transmission Date: 20170829
  Serious: Yes (Other)
  Sender: FDA-Public Use
  Company Number: US-PFIZER INC-2016061303

PATIENT
  Age: 77 Year
  Sex: Female

DRUGS (2)
  1. LETROZOLE. [Suspect]
     Active Substance: LETROZOLE
     Dosage: 2.5 MG, UNK
     Dates: start: 20151022
  2. IBRANCE [Suspect]
     Active Substance: PALBOCICLIB
     Dosage: 125 MG, UNK
     Dates: start: 20151022

REACTIONS (16)
  - Fatigue [Unknown]
  - Decreased appetite [Unknown]
  - Discomfort [Unknown]
  - Gait disturbance [Unknown]
  - Dehydration [Unknown]
  - Loss of consciousness [Unknown]
  - Diarrhoea [Recovered/Resolved]
  - Insomnia [Unknown]
  - White blood cell count decreased [Unknown]
  - Hypoaesthesia [Unknown]
  - Back pain [Unknown]
  - Skin exfoliation [Unknown]
  - Neuropathy peripheral [Unknown]
  - Urinary tract infection [Unknown]
  - Dry skin [Unknown]
  - Dizziness [Not Recovered/Not Resolved]

NARRATIVE: CASE EVENT DATE: 201607
